FAERS Safety Report 9258462 (Version 1)
Quarter: 2013Q1

REPORT INFORMATION
  Report Type: Spontaneous
  Country: US (occurrence: None)
  Receive Date: 20121212
  Receipt Date: 20121212
  Transmission Date: 20140127
  Serious: No
  Sender: FDA-Public Use
  Company Number: 1209USA010071

PATIENT
  Age: 50 Year
  Sex: Female
  Weight: 68.9 kg

DRUGS (1)
  1. VICTRELIS [Suspect]
     Indication: HEPATITIS C
     Dosage: 800 MG, QD 4  CAPSULES , ORAL
     Dates: start: 20110929, end: 20120201

REACTIONS (1)
  - Anaemia [None]
